FAERS Safety Report 21249752 (Version 2)
Quarter: 2022Q3

REPORT INFORMATION
  Report Type: Spontaneous
  Country: US (occurrence: US)
  Receive Date: 20220824
  Receipt Date: 20220907
  Transmission Date: 20221027
  Serious: No
  Sender: FDA-Public Use
  Company Number: US-PFIZER INC-202201085809

PATIENT
  Age: 52 Year
  Sex: Male
  Weight: 74.825 kg

DRUGS (1)
  1. BOSULIF [Suspect]
     Active Substance: BOSUTINIB MONOHYDRATE
     Dosage: UNK

REACTIONS (3)
  - Flatulence [Not Recovered/Not Resolved]
  - Diarrhoea [Recovering/Resolving]
  - Malaise [Not Recovered/Not Resolved]
